FAERS Safety Report 5755096-1 (Version None)
Quarter: 2008Q2

REPORT INFORMATION
  Report Type: 
  Country: None (occurrence: None)
  Receive Date: 20080602
  Receipt Date: 20080128
  Transmission Date: 20081010
  Serious: No
  Sender: FDA-Public Use
  Company Number: A0707876A

PATIENT
  Age: 29 Year
  Sex: Female

DRUGS (6)
  1. AUGMENTIN '125' [Suspect]
     Indication: UPPER RESPIRATORY TRACT INFECTION
     Dosage: 875MG TWICE PER DAY
     Route: 048
     Dates: start: 20071002
  2. FLUTICASONE PROPIONATE NASAL SPRAY [Suspect]
     Indication: UPPER RESPIRATORY TRACT INFECTION
     Dosage: 4SPR PER DAY
     Route: 045
     Dates: start: 20071004
  3. PREDNISONE TAB [Suspect]
     Indication: UPPER RESPIRATORY TRACT INFECTION
     Dosage: 20MG TWICE PER DAY
     Route: 048
     Dates: start: 20071002
  4. VICKS INH [Suspect]
     Indication: UPPER RESPIRATORY TRACT INFECTION
  5. ALDOMET [Concomitant]
     Indication: HYPERTENSION
     Dosage: 500MG TWICE PER DAY
     Route: 048
  6. PRECARE VITAMINS [Concomitant]
     Indication: PROPHYLAXIS
     Route: 048

REACTIONS (4)
  - DRUG EXPOSURE DURING PREGNANCY [None]
  - DRUG INEFFECTIVE FOR UNAPPROVED INDICATION [None]
  - FEELING ABNORMAL [None]
  - FORMICATION [None]
